FAERS Safety Report 4769069-9 (Version None)
Quarter: 2005Q3

REPORT INFORMATION
  Report Type: 
  Country: None (occurrence: None)
  Receive Date: 20050914
  Receipt Date: 20050901
  Transmission Date: 20060218
  Serious: Yes (Other)
  Sender: FDA-Public Use
  Company Number: 2005123318

PATIENT
  Age: 63 Year
  Sex: Male
  Weight: 92.9874 kg

DRUGS (4)
  1. NATURAL CITRUS LISTERINE (MENTHOL, METHYL SALICYLATE, EUCALYPTOL, THYM [Suspect]
     Indication: DENTAL DISORDER PROPHYLAXIS
     Dosage: 1/2 CAPFUL ONCE A DAY, ORAL TOPICAL
     Route: 061
     Dates: start: 20050401, end: 20050801
  2. TOCOPHEROL (TOCOPHEROL) [Concomitant]
  3. SODIUM FLUOROPHOSPHATE (SODIUM FLUOROPHOSPHATE) [Concomitant]
  4. ATORVASTATIN CALCIUM [Concomitant]

REACTIONS (8)
  - BUCCAL MUCOSAL ROUGHENING [None]
  - HYPERKERATOSIS [None]
  - LIP HAEMORRHAGE [None]
  - MOUTH HAEMORRHAGE [None]
  - ORAL DISCOMFORT [None]
  - ORAL MUCOSAL EXFOLIATION [None]
  - STOMATITIS [None]
  - TONGUE HAEMORRHAGE [None]
